FAERS Safety Report 5622410-7 (Version None)
Quarter: 2008Q1

REPORT INFORMATION
  Report Type: 
  Country: None (occurrence: None)
  Receive Date: 20080211
  Receipt Date: 20080130
  Transmission Date: 20080703
  Serious: Yes (Hospitalization)
  Sender: FDA-Public Use
  Company Number: JP-PFIZER INC-2008008140

PATIENT
  Age: 49 Year
  Sex: Male

DRUGS (2)
  1. ZITHROMAX [Suspect]
     Indication: INFECTION PROPHYLAXIS
     Route: 048
     Dates: start: 20080121, end: 20080122
  2. FLOMOX [Suspect]
     Dosage: TEXT: 9 TABLETS
     Route: 048
     Dates: start: 20080122, end: 20080123

REACTIONS (2)
  - DYSPNOEA [None]
  - URTICARIA [None]
